FAERS Safety Report 13538450 (Version 1)
Quarter: 2017Q2

REPORT INFORMATION
  Report Type: Spontaneous
  Country: US (occurrence: US)
  Receive Date: 20170512
  Receipt Date: 20170512
  Transmission Date: 20170830
  Serious: Yes (Death)
  Sender: FDA-Public Use
  Company Number: US-BAUSCH-BL-2017-014242

PATIENT
  Sex: Male

DRUGS (1)
  1. XENAZINE [Suspect]
     Active Substance: TETRABENAZINE
     Indication: CHOREA
     Dosage: ONE TABLET EVERY OTHER NIGHT
     Route: 048
     Dates: start: 201112

REACTIONS (1)
  - Pancreatitis [Fatal]
